FAERS Safety Report 9699383 (Version 1)
Quarter: 2013Q4

REPORT INFORMATION
  Report Type: Spontaneous
  Country: IT (occurrence: IT)
  Receive Date: 20131120
  Receipt Date: 20131120
  Transmission Date: 20140711
  Serious: Yes (Hospitalization)
  Sender: FDA-Public Use
  Company Number: IT-MYLANLABS-2013S1025429

PATIENT
  Age: 40 Year
  Sex: Male

DRUGS (8)
  1. TAMSULOSIN [Suspect]
     Indication: PRODUCT USED FOR UNKNOWN INDICATION
     Dates: start: 20120908, end: 20130907
  2. FUROSEMIDE [Suspect]
     Indication: PRODUCT USED FOR UNKNOWN INDICATION
     Dates: start: 20120908, end: 20130907
  3. VASCOMAN [Suspect]
     Indication: PRODUCT USED FOR UNKNOWN INDICATION
  4. CATAPRESAN [Suspect]
     Indication: PRODUCT USED FOR UNKNOWN INDICATION
     Route: 062
     Dates: start: 20120908, end: 20130907
  5. ARANESP [Concomitant]
     Indication: PRODUCT USED FOR UNKNOWN INDICATION
  6. CALCITRIOL [Concomitant]
     Indication: PRODUCT USED FOR UNKNOWN INDICATION
  7. ALLOPURINOL [Concomitant]
     Indication: PRODUCT USED FOR UNKNOWN INDICATION
  8. ASA [Concomitant]
     Indication: PRODUCT USED FOR UNKNOWN INDICATION

REACTIONS (2)
  - Orthostatic hypotension [Recovering/Resolving]
  - Syncope [Recovering/Resolving]
